FAERS Safety Report 19203999 (Version 2)
Quarter: 2021Q3

REPORT INFORMATION
  Report Type: Spontaneous
  Country: US (occurrence: US)
  Receive Date: 20210503
  Receipt Date: 20210706
  Transmission Date: 20211014
  Serious: Yes (Hospitalization, Other)
  Sender: FDA-Public Use
  Company Number: US-RECORDATI RARE DISEASE INC.-2021001533

PATIENT
  Age: 32 Year
  Sex: Female

DRUGS (24)
  1. MULTIVITAMINS [VITAMINS NOS] [Concomitant]
     Active Substance: VITAMINS
     Indication: PRODUCT USED FOR UNKNOWN INDICATION
     Dosage: UNK, UNK
     Route: 065
  2. OMEPRAZOLE. [Concomitant]
     Active Substance: OMEPRAZOLE
     Indication: PRODUCT USED FOR UNKNOWN INDICATION
     Dosage: UNK, UNK
     Route: 065
  3. ONDASETRON [ONDANSETRON] [Concomitant]
     Active Substance: ONDANSETRON
     Indication: PRODUCT USED FOR UNKNOWN INDICATION
     Dosage: UNK, UNK
     Route: 065
  4. PANHEMATIN [Suspect]
     Active Substance: HEMIN
     Indication: PORPHYRIA ACUTE
     Dosage: 4 MILLIGRAM/KILOGRAM, QD
     Route: 042
     Dates: start: 20210310, end: 20210313
  5. PANHEMATIN [Suspect]
     Active Substance: HEMIN
     Dosage: 4 MILLIGRAM/KILOGRAM, QD
     Route: 042
     Dates: start: 20210330, end: 20210330
  6. PANHEMATIN [Suspect]
     Active Substance: HEMIN
     Dosage: 4 MILLIGRAM/KILOGRAM, QD
     Route: 042
     Dates: start: 20210329, end: 20210329
  7. ACETAMINOPHEN. [Concomitant]
     Active Substance: ACETAMINOPHEN
     Indication: PRODUCT USED FOR UNKNOWN INDICATION
     Dosage: UNK, UNK
     Route: 065
  8. ENOXAPARIN [Concomitant]
     Active Substance: ENOXAPARIN
     Indication: PRODUCT USED FOR UNKNOWN INDICATION
     Dosage: UNK, UNK
     Route: 065
  9. FENTANYL. [Concomitant]
     Active Substance: FENTANYL
     Indication: PRODUCT USED FOR UNKNOWN INDICATION
     Dosage: UNK, UNK
     Route: 065
  10. LACTATED RINGERS SOLUTION [Concomitant]
     Active Substance: CALCIUM CHLORIDE\POTASSIUM CHLORIDE\SODIUM CHLORIDE\SODIUM LACTATE
     Indication: PRODUCT USED FOR UNKNOWN INDICATION
     Dosage: UNK, UNK
     Route: 065
  11. PANHEMATIN [Suspect]
     Active Substance: HEMIN
     Indication: CONDITION AGGRAVATED
     Dosage: 4 MILLIGRAM/KILOGRAM, QD
     Route: 042
     Dates: start: 20210327, end: 20210327
  12. LORAZEPAM. [Concomitant]
     Active Substance: LORAZEPAM
     Indication: PRODUCT USED FOR UNKNOWN INDICATION
     Dosage: UNK, UNK
     Route: 065
  13. PANHEMATIN [Suspect]
     Active Substance: HEMIN
     Dosage: 4 MILLIGRAM/KILOGRAM, QD
     Route: 042
     Dates: start: 20210415, end: 20210415
  14. PANHEMATIN [Suspect]
     Active Substance: HEMIN
     Dosage: 4 MILLIGRAM/KILOGRAM, QD
     Route: 042
     Dates: start: 20210416, end: 20210416
  15. DIPHENHYDRAMINE. [Concomitant]
     Active Substance: DIPHENHYDRAMINE
     Indication: PRODUCT USED FOR UNKNOWN INDICATION
     Dosage: UNK, UNK
     Route: 065
  16. MORPHINE [Concomitant]
     Active Substance: MORPHINE
     Indication: PRODUCT USED FOR UNKNOWN INDICATION
     Dosage: UNK, UNK
     Route: 065
  17. PANHEMATIN [Suspect]
     Active Substance: HEMIN
     Dosage: 4 MILLIGRAM/KILOGRAM, QD
     Route: 042
     Dates: start: 20210417, end: 20210417
  18. PANHEMATIN [Suspect]
     Active Substance: HEMIN
     Dosage: 4 MILLIGRAM/KILOGRAM, QD
     Route: 042
     Dates: start: 20210418, end: 20210418
  19. HYDROMORPHONE [Concomitant]
     Active Substance: HYDROMORPHONE
     Indication: PRODUCT USED FOR UNKNOWN INDICATION
     Dosage: UNK, UNK
     Route: 065
  20. NORMAL SALINE [Concomitant]
     Active Substance: SODIUM CHLORIDE
     Indication: PRODUCT USED FOR UNKNOWN INDICATION
     Dosage: UNK, UNK
     Route: 065
  21. SERTRALINE [Concomitant]
     Active Substance: SERTRALINE HYDROCHLORIDE
     Indication: PRODUCT USED FOR UNKNOWN INDICATION
     Dosage: UNK, UNK
     Route: 065
  22. PANHEMATIN [Suspect]
     Active Substance: HEMIN
     Dosage: 4 MILLIGRAM/KILOGRAM, QD
     Route: 042
     Dates: start: 20210328, end: 20210328
  23. DOCUSATE [Concomitant]
     Active Substance: DOCUSATE
     Indication: PRODUCT USED FOR UNKNOWN INDICATION
     Dosage: UNK, UNK
     Route: 065
  24. FUROSEMIDE. [Concomitant]
     Active Substance: FUROSEMIDE
     Indication: PRODUCT USED FOR UNKNOWN INDICATION
     Dosage: UNK, UNK
     Route: 065

REACTIONS (3)
  - Exposure during pregnancy [Recovered/Resolved]
  - Porphyria [Recovered/Resolved]
  - Pain [Recovering/Resolving]

NARRATIVE: CASE EVENT DATE: 20210310
